FAERS Safety Report 7981820-3 (Version None)
Quarter: 2011Q4

REPORT INFORMATION
  Report Type: 
  Country: None (occurrence: None)
  Receive Date: 20111215
  Receipt Date: 20111202
  Transmission Date: 20120403
  Serious: Yes (Hospitalization)
  Sender: FDA-Public Use
  Company Number: JP-ASTELLAS-2011US008370

PATIENT
  Sex: Male
  Weight: 66 kg

DRUGS (6)
  1. RINDERON VG [Concomitant]
     Indication: RASH
     Dosage: 1 DF, UID/QD
     Route: 061
     Dates: start: 20111013
  2. HIRUDOID [Concomitant]
     Indication: RASH
     Dosage: 1 DF, UID/QD
     Route: 061
     Dates: start: 20111028
  3. OLOPATADINE HCL [Suspect]
     Indication: RASH
     Dosage: 5 U, BID
     Route: 048
     Dates: start: 20110930
  4. ERLOTINIB HYDROCHLORIDE [Suspect]
     Indication: NON-SMALL CELL LUNG CANCER
     Dosage: 150 MG, UID/QD
     Route: 048
     Dates: start: 20110323, end: 20111201
  5. ZINC OXIDE [Concomitant]
     Indication: RASH
     Dosage: 1 DF, UID/QD
     Route: 061
     Dates: start: 20111013
  6. CINAL [Concomitant]
     Indication: RASH
     Dosage: 1 DF, TID
     Route: 048
     Dates: start: 20110610

REACTIONS (2)
  - PULMONARY EMBOLISM [None]
  - PERIPHERAL EMBOLISM [None]
